FAERS Safety Report 4666573-9 (Version None)
Quarter: 2005Q2

REPORT INFORMATION
  Report Type: 
  Country: None (occurrence: None)
  Receive Date: 20050517
  Receipt Date: 20050429
  Transmission Date: 20051028
  Serious: Yes (Hospitalization, Other)
  Sender: FDA-Public Use
  Company Number: US_000848589

PATIENT
  Age: 68 Year
  Sex: Female
  Weight: 57 kg

DRUGS (2)
  1. HUMULIN 70/30 [Suspect]
     Indication: DIABETES MELLITUS
     Dosage: 8 U IN THE MORNING
     Dates: start: 20000624
  2. HUMULIN R [Suspect]
     Indication: DIABETES MELLITUS
     Dates: start: 20041101

REACTIONS (7)
  - BLOOD GLUCOSE DECREASED [None]
  - BLOOD GLUCOSE INCREASED [None]
  - BRAIN NEOPLASM [None]
  - DIALYSIS [None]
  - FALL [None]
  - INFECTION [None]
  - SPINAL FRACTURE [None]
